FAERS Safety Report 7253960-8 (Version None)
Quarter: 2011Q1

REPORT INFORMATION
  Report Type: 
  Country: None (occurrence: None)
  Receive Date: 20110129
  Receipt Date: 20100327
  Transmission Date: 20110831
  Serious: No
  Sender: FDA-Public Use
  Company Number: US-ABBOTT-10P-163-0635036-00

PATIENT
  Sex: Female
  Weight: 69.008 kg

DRUGS (1)
  1. HUMIRA [Suspect]
     Indication: PSORIATIC ARTHROPATHY

REACTIONS (5)
  - FATIGUE [None]
  - NAUSEA [None]
  - TINNITUS [None]
  - RASH PRURITIC [None]
  - ABDOMINAL PAIN [None]
